FAERS Safety Report 6653050-9 (Version None)
Quarter: 2010Q1

REPORT INFORMATION
  Report Type: 
  Country: None (occurrence: None)
  Receive Date: 20100326
  Receipt Date: 20100317
  Transmission Date: 20100710
  Serious: Yes (Other)
  Sender: FDA-Public Use
  Company Number: PHEH2010US03172

PATIENT
  Sex: Female

DRUGS (6)
  1. RECLAST [Suspect]
     Dosage: UNK
     Dates: start: 20090917
  2. CELEBREX [Concomitant]
  3. VITAMIN D [Concomitant]
  4. VITAMINS NOS [Concomitant]
  5. SALINE [Concomitant]
     Dosage: 5% SALINE
  6. LUTEIN [Concomitant]

REACTIONS (6)
  - ARTHRALGIA [None]
  - HEADACHE [None]
  - INFLUENZA [None]
  - KNEE OPERATION [None]
  - NASOPHARYNGITIS [None]
  - PAIN IN JAW [None]
